FAERS Safety Report 10011120 (Version 1)
Quarter: 2014Q1

REPORT INFORMATION
  Report Type: Spontaneous
  Country: TR (occurrence: None)
  Receive Date: 20140312
  Receipt Date: 20140312
  Transmission Date: 20141002
  Serious: Yes (Other)
  Sender: FDA-Public Use
  Company Number: VAL_03013_2014

PATIENT
  Age: 49 Year
  Sex: Male

DRUGS (1)
  1. CARBAMAZEPINE [Suspect]
     Indication: GRAND MAL CONVULSION

REACTIONS (10)
  - Abnormal behaviour [None]
  - Agitation [None]
  - Aggression [None]
  - Screaming [None]
  - Restlessness [None]
  - Stab wound [None]
  - Dissociative fugue [None]
  - Confusional state [None]
  - Amnesia [None]
  - Status epilepticus [None]
